FAERS Safety Report 9410389 (Version 1)
Quarter: 2013Q3

REPORT INFORMATION
  Report Type: Spontaneous
  Country: US (occurrence: US)
  Receive Date: 20130719
  Receipt Date: 20130719
  Transmission Date: 20140515
  Serious: Yes (Death)
  Sender: FDA-Public Use
  Company Number: US-GLAXOSMITHKLINE-A1033110A

PATIENT
  Age: 64 Year
  Sex: Female

DRUGS (5)
  1. ARIXTRA [Suspect]
     Indication: DEEP VEIN THROMBOSIS
     Dosage: 7.5MG PER DAY
     Route: 058
     Dates: start: 20120806, end: 20121029
  2. PAIN MEDICATIONS [Concomitant]
  3. COLACE [Concomitant]
  4. GABAPENTIN [Concomitant]
  5. FENTANYL [Concomitant]

REACTIONS (2)
  - Lung neoplasm malignant [Fatal]
  - Hospice care [Unknown]
